FAERS Safety Report 6220503-7 (Version None)
Quarter: 2009Q2

REPORT INFORMATION
  Report Type: 
  Country: None (occurrence: None)
  Receive Date: 20090610
  Receipt Date: 20080922
  Transmission Date: 20091009
  Serious: No
  Sender: FDA-Public Use
  Company Number: US-KINGPHARMUSA00001-K200801117

PATIENT
  Sex: Female

DRUGS (1)
  1. INTAL [Suspect]

REACTIONS (2)
  - ABDOMINAL DISCOMFORT [None]
  - LACRIMATION INCREASED [None]
